FAERS Safety Report 8225767-6 (Version None)
Quarter: 2012Q1

REPORT INFORMATION
  Report Type: 
  Country: None (occurrence: None)
  Receive Date: 20120321
  Receipt Date: 20120313
  Transmission Date: 20120608
  Serious: Yes (Other)
  Sender: FDA-Public Use
  Company Number: US-ELI_LILLY_AND_COMPANY-US201202006345

PATIENT
  Sex: Female

DRUGS (3)
  1. HUMULIN R [Suspect]
     Dosage: UNK
     Route: 058
     Dates: start: 20090101
  2. HUMULIN R [Suspect]
     Indication: DIABETES MELLITUS
     Dosage: UNK
     Route: 058
     Dates: start: 20090101
  3. BYETTA [Concomitant]
     Dosage: UNK, BID

REACTIONS (5)
  - DRUG DISPENSING ERROR [None]
  - BLOOD GLUCOSE INCREASED [None]
  - IMPAIRED HEALING [None]
  - SKIN CANCER [None]
  - DRUG INEFFECTIVE [None]
